FAERS Safety Report 4509043-0 (Version None)
Quarter: 2004Q3

REPORT INFORMATION
  Report Type: 
  Country: None (occurrence: None)
  Receive Date: 20040928
  Receipt Date: 20040617
  Transmission Date: 20050211
  Serious: No
  Sender: FDA-Public Use
  Company Number: 04P-163-0264070-00

PATIENT
  Sex: Male

DRUGS (8)
  1. HUMIRA [Suspect]
     Dosage: 40 MG, 1 N 2 WK, SUBCUTANEOUS
     Route: 058
     Dates: start: 20040602
  2. METHOTREXATE SODIUM [Concomitant]
  3. FOLIC ACID [Concomitant]
  4. CELECOXIB [Concomitant]
  5. PREDNISONE [Concomitant]
  6. GLIPIZIDE [Concomitant]
  7. RAMIPRIL [Concomitant]
  8. METOPROLOL TARTRATE [Concomitant]

REACTIONS (1)
  - DRUG INEFFECTIVE [None]
